FAERS Safety Report 14695438 (Version 1)
Quarter: 2018Q1

REPORT INFORMATION
  Report Type: Spontaneous
  Country: CA (occurrence: CA)
  Receive Date: 20180329
  Receipt Date: 20180329
  Transmission Date: 20180509
  Serious: Yes (Life-Threatening, Hospitalization, Other)
  Sender: FDA-Public Use
  Company Number: CA-BAYER-2018-055919

PATIENT
  Age: 54 Year
  Sex: Female
  Weight: 68.03 kg

DRUGS (12)
  1. ASPIRIN 81 MG [Suspect]
     Active Substance: ASPIRIN
  2. POTASSIUM 99 [Concomitant]
  3. ALPHA LIPOIC ACID [Concomitant]
     Active Substance: .ALPHA.-LIPOIC ACID
  4. TALWIN [Concomitant]
     Active Substance: PENTAZOCINE LACTATE
  5. HEALTHSTREAM ZINC TRIPLE STRENGTH PLUS [Concomitant]
  6. UBIQUINOL [Concomitant]
     Active Substance: UBIQUINOL
  7. MULTIVITAMIN WITH MINERALS [Concomitant]
     Active Substance: MINERALS\VITAMINS
  8. D3 VIGANTOL FORTE [Concomitant]
  9. CONJUGATED LINOLEIC ACID [Suspect]
     Active Substance: LINOLEIC ACID, CONJUGATED
     Indication: WEIGHT DECREASED
     Dosage: 1000 MG, BID
     Route: 048
  10. CHROMIUM PICOLINATE [Concomitant]
     Active Substance: CHROMIUM PICOLINATE
  11. MAGNESIUM CARBONATE [Concomitant]
     Active Substance: MAGNESIUM CARBONATE
  12. OMEGA 3-6-9 [Concomitant]
     Active Substance: FISH OIL

REACTIONS (11)
  - Coagulopathy [Recovered/Resolved]
  - Abdominal discomfort [Recovered/Resolved]
  - Alanine aminotransferase increased [Recovered/Resolved]
  - Hepatitis acute [Recovered/Resolved]
  - Blood bilirubin increased [Recovered/Resolved]
  - Aspartate aminotransferase increased [Recovered/Resolved]
  - Hepatic steatosis [Recovered/Resolved]
  - Blood albumin decreased [Recovered/Resolved]
  - Chromaturia [Recovered/Resolved]
  - Drug screen positive [Recovered/Resolved]
  - Jaundice [Recovered/Resolved]
